FAERS Safety Report 7497086-7 (Version None)
Quarter: 2011Q2

REPORT INFORMATION
  Report Type: 
  Country: None (occurrence: None)
  Receive Date: 20110523
  Receipt Date: 20110511
  Transmission Date: 20111010
  Serious: Yes (Hospitalization, Other)
  Sender: FDA-Public Use
  Company Number: BR-SANOFI-AVENTIS-2011SA029685

PATIENT
  Age: 20 Year
  Sex: Female

DRUGS (4)
  1. AUTOPEN 24 [Suspect]
  2. PURAN T4 [Concomitant]
     Indication: HYPERTHYROIDISM
  3. NOVORAPID [Concomitant]
     Indication: TYPE 1 DIABETES MELLITUS
     Dosage: ACCORDING TO GLYCEMIA
  4. LANTUS [Suspect]

REACTIONS (6)
  - DIZZINESS [None]
  - KETOACIDOSIS [None]
  - HYPERGLYCAEMIA [None]
  - NAUSEA [None]
  - SOMNOLENCE [None]
  - PALLOR [None]
